FAERS Safety Report 4384083-3 (Version None)
Quarter: 2004Q2

REPORT INFORMATION
  Report Type: 
  Country: None (occurrence: None)
  Receive Date: 20040621
  Receipt Date: 20040608
  Transmission Date: 20050107
  Serious: No
  Sender: FDA-Public Use
  Company Number: 04H-087-0263284-00

PATIENT
  Age: 65 Year
  Sex: Male

DRUGS (3)
  1. HEPARIN SODIUM [Suspect]
     Indication: COAGULOPATHY
  2. ERYTHROPOIETIN HUMAN [Suspect]
     Indication: ANAEMIA
     Dosage: 3000 UNIT, 3 X PER WEEK AFTER DIALYSIS, INTRAVENOUS
     Route: 042
  3. ASPIRIN [Concomitant]

REACTIONS (3)
  - DRUG INTERACTION POTENTIATION [None]
  - HEPARIN-INDUCED THROMBOCYTOPENIA [None]
  - MEDICAL DEVICE COMPLICATION [None]
